FAERS Safety Report 5371924-6 (Version None)
Quarter: 2007Q2

REPORT INFORMATION
  Report Type: 
  Country: None (occurrence: None)
  Receive Date: 20070619
  Receipt Date: 20070416
  Transmission Date: 20071010
  Serious: No
  Sender: FDA-Public Use
  Company Number: 2007US000993

PATIENT
  Age: 62 Year
  Sex: Female

DRUGS (9)
  1. VESICARE [Suspect]
     Indication: URINARY INCONTINENCE
     Dosage: 5 MG, ORAL
     Route: 048
     Dates: start: 20061001
  2. KLONOPIN [Concomitant]
  3. COZAAR [Concomitant]
  4. EVISTA [Concomitant]
  5. MAXZIDE [Concomitant]
  6. SYNTHROID [Concomitant]
  7. FLUOXETINE [Concomitant]
  8. POTASSIUM (POTASSIUM) [Concomitant]
  9. MULTIVITAMIN [Concomitant]

REACTIONS (2)
  - CONSTIPATION [None]
  - URINARY RETENTION [None]
